FAERS Safety Report 23281599 (Version 2)
Quarter: 2024Q1

REPORT INFORMATION
  Report Type: Spontaneous
  Country: JP (occurrence: JP)
  Receive Date: 20231211
  Receipt Date: 20240206
  Transmission Date: 20240409
  Serious: Yes (Hospitalization, Other)
  Sender: FDA-Public Use
  Company Number: JP-VIIV HEALTHCARE LIMITED-JP2023JPN169804

PATIENT

DRUGS (2)
  1. TRIUMEQ [Suspect]
     Active Substance: ABACAVIR SULFATE\DOLUTEGRAVIR SODIUM\LAMIVUDINE
     Indication: HIV infection
     Dosage: UNK
     Route: 048
  2. BIKTARVY [Concomitant]
     Active Substance: BICTEGRAVIR SODIUM\EMTRICITABINE\TENOFOVIR ALAFENAMIDE FUMARATE
     Indication: HIV infection
     Dosage: UNK

REACTIONS (14)
  - Drug hypersensitivity [Recovering/Resolving]
  - Histiocytic necrotising lymphadenitis [Recovering/Resolving]
  - Pyrexia [Recovering/Resolving]
  - Neck pain [Recovering/Resolving]
  - Rash [Recovering/Resolving]
  - Rash maculo-papular [Recovering/Resolving]
  - Erythema [Recovering/Resolving]
  - Lymphadenopathy [Recovering/Resolving]
  - Pancytopenia [Recovering/Resolving]
  - Hepatosplenomegaly [Recovering/Resolving]
  - Inflammatory marker increased [Recovering/Resolving]
  - Blood lactate dehydrogenase increased [Recovering/Resolving]
  - Hepatic enzyme increased [Recovering/Resolving]
  - Prescription drug used without a prescription [Unknown]
